FAERS Safety Report 5853707-3 (Version None)
Quarter: 2008Q3

REPORT INFORMATION
  Report Type: 
  Country: None (occurrence: None)
  Receive Date: 20080822
  Receipt Date: 20080811
  Transmission Date: 20090109
  Serious: Yes (Other)
  Sender: FDA-Public Use
  Company Number: US-KINGPHARMUSA00001-K200800901

PATIENT

DRUGS (3)
  1. LEVOXYL [Suspect]
     Indication: HYPOTHYROIDISM
     Dosage: 50 MCG, QD
     Route: 048
     Dates: start: 20061101, end: 20080726
  2. TYLENOL (CAPLET) [Concomitant]
     Dosage: UNK, PRN
     Route: 048
  3. ESTROVEN                           /02150801/ [Concomitant]

REACTIONS (13)
  - ABDOMINAL PAIN UPPER [None]
  - ACTIVITIES OF DAILY LIVING IMPAIRED [None]
  - ANTI-THYROID ANTIBODY POSITIVE [None]
  - ASTHENIA [None]
  - DIARRHOEA [None]
  - HEADACHE [None]
  - MALAISE [None]
  - NAUSEA [None]
  - NERVOUS SYSTEM DISORDER [None]
  - SKIN DISCOLOURATION [None]
  - THYROID NEOPLASM [None]
  - VERTIGO [None]
  - VOMITING [None]
